FAERS Safety Report 18748306 (Version 1)
Quarter: 2021Q1

REPORT INFORMATION
  Report Type: Spontaneous
  Country: US (occurrence: US)
  Receive Date: 20210115
  Receipt Date: 20210115
  Transmission Date: 20210419
  Serious: Yes (Hospitalization, Other)
  Sender: FDA-Public Use
  Company Number: US-MYLANLABS-2021M1002488

PATIENT
  Sex: Female

DRUGS (1)
  1. EPINEPHRINE. [Suspect]
     Active Substance: EPINEPHRINE
     Indication: PHARYNGEAL SWELLING
     Dosage: 0.3 MILLIGRAM
     Route: 065
     Dates: start: 20210107, end: 20210107

REACTIONS (1)
  - Therapeutic product effect incomplete [Unknown]
